FAERS Safety Report 10672910 (Version 1)
Quarter: 2014Q4

REPORT INFORMATION
  Report Type: Spontaneous
  Country: US (occurrence: US)
  Receive Date: 20141223
  Receipt Date: 20141223
  Transmission Date: 20150529
  Serious: Yes (Other)
  Sender: FDA-Public Use
  Company Number: US-PFIZER INC-2014349088

PATIENT
  Age: 47 Year
  Sex: Male

DRUGS (1)
  1. ACCURETIC [Suspect]
     Active Substance: HYDROCHLOROTHIAZIDE\QUINAPRIL HYDROCHLORIDE
     Dosage: 1 DF (20/ 12.5 MG), 1X/DAY

REACTIONS (1)
  - Throat cancer [Unknown]
